FAERS Safety Report 24540504 (Version 1)
Quarter: 2024Q4

REPORT INFORMATION
  Report Type: Spontaneous
  Country: FR (occurrence: FR)
  Receive Date: 20241023
  Receipt Date: 20241023
  Transmission Date: 20250114
  Serious: Yes (Other)
  Sender: WAYLIS THERAPEUTICS LLC
  Company Number: None

PATIENT
  Age: 60 Year
  Sex: Female

DRUGS (3)
  1. DIAZEPAM [Suspect]
     Active Substance: DIAZEPAM
     Indication: Toxicity to various agents
     Route: 050
     Dates: start: 202211
  2. PHENYTOIN [Suspect]
     Active Substance: PHENYTOIN
     Indication: Toxicity to various agents
     Route: 050
     Dates: start: 202309
  3. KETAMINE HYDROCHLORIDE [Suspect]
     Active Substance: KETAMINE HYDROCHLORIDE
     Indication: Toxicity to various agents
     Route: 050
     Dates: start: 202211, end: 202309

REACTIONS (2)
  - Toxicity to various agents [Not Recovered/Not Resolved]
  - Chemical submission [Not Recovered/Not Resolved]

NARRATIVE: CASE EVENT DATE: 20221101
